FAERS Safety Report 8382377-8 (Version None)
Quarter: 2012Q2

REPORT INFORMATION
  Report Type: 
  Country: None (occurrence: None)
  Receive Date: 20120524
  Receipt Date: 20120521
  Transmission Date: 20120825
  Serious: Yes (Hospitalization)
  Sender: FDA-Public Use
  Company Number: JP-JNJFOC-20111008432

PATIENT
  Sex: Female
  Weight: 42 kg

DRUGS (10)
  1. FENTANYL-100 [Suspect]
     Indication: ARTHRALGIA
     Dosage: APPLIED HALF SIDE
     Route: 062
  2. PLAVIX [Concomitant]
     Indication: ARTERIOSCLEROSIS CORONARY ARTERY
     Route: 048
  3. ASPIRIN [Concomitant]
     Indication: ARTERIOSCLEROSIS CORONARY ARTERY
     Route: 048
  4. INSULIN [Concomitant]
     Indication: TYPE 1 DIABETES MELLITUS
     Route: 058
  5. FENTANYL-100 [Suspect]
     Route: 062
     Dates: start: 20101005, end: 20101010
  6. FENTANYL-100 [Suspect]
     Route: 062
     Dates: start: 20101005, end: 20101010
  7. FENTANYL-100 [Suspect]
     Indication: PAIN
     Dosage: APPLIED HALF SIDE
     Route: 062
  8. PREDNISOLONE [Concomitant]
     Indication: SYSTEMIC LUPUS ERYTHEMATOSUS
     Route: 048
  9. LEVOTHYROXINE SODIUM [Concomitant]
     Indication: HYPOTHYROIDISM
     Route: 048
  10. INSULIN [Concomitant]
     Route: 058

REACTIONS (3)
  - METABOLIC ENCEPHALOPATHY [None]
  - OVERDOSE [None]
  - SOMNOLENCE [None]
